FAERS Safety Report 9722978 (Version 1)
Quarter: 2013Q4

REPORT INFORMATION
  Report Type: Spontaneous
  Country: US (occurrence: None)
  Receive Date: 20131127
  Receipt Date: 20131127
  Transmission Date: 20140711
  Serious: No
  Sender: FDA-Public Use
  Company Number: None

PATIENT
  Sex: Male

DRUGS (11)
  1. FORTEO [Suspect]
     Dosage: 20 MCG, SQ, QD.
     Dates: start: 20121218
  2. ADDERALL [Concomitant]
  3. KEPPRA [Concomitant]
  4. LIPITOR [Concomitant]
  5. CITALOPRAM [Concomitant]
  6. TYELENO [Concomitant]
  7. DILANTIN [Concomitant]
  8. PROXHLORAZINE [Concomitant]
  9. DICYCLOMINE [Concomitant]
  10. GABAPENTIN [Concomitant]
  11. ZONASAMID [Concomitant]

REACTIONS (1)
  - Convulsion [None]
